FAERS Safety Report 14155588 (Version 2)
Quarter: 2017Q4

REPORT INFORMATION
  Report Type: Spontaneous
  Country: US (occurrence: US)
  Receive Date: 20171103
  Receipt Date: 20171106
  Transmission Date: 20180321
  Serious: No
  Sender: FDA-Public Use
  Company Number: US-PFIZER INC-2017469547

PATIENT
  Age: 81 Year
  Sex: Female
  Weight: 92.53 kg

DRUGS (3)
  1. GABAPENTIN. [Interacting]
     Active Substance: GABAPENTIN
     Dosage: 600MG IN THE MORNING,1200MG AT NIGHT
     Dates: start: 2017
  2. LYRICA [Suspect]
     Active Substance: PREGABALIN
     Dosage: 50 MG, 1X/DAY(FIRST DAY TOOK ONCE AT NIGHT)
     Route: 048
     Dates: start: 20171012
  3. LYRICA [Interacting]
     Active Substance: PREGABALIN
     Dosage: 50 MG, 2X/DAY(THEN CONTINUED WITH TAKING IT TWICE A DAY)
     Route: 048
     Dates: end: 20171027

REACTIONS (4)
  - Overdose [Unknown]
  - Drug interaction [Unknown]
  - Disorientation [Unknown]
  - Intentional product misuse [Unknown]

NARRATIVE: CASE EVENT DATE: 201710
